FAERS Safety Report 8270861-7 (Version None)
Quarter: 2012Q2

REPORT INFORMATION
  Report Type: 
  Country: None (occurrence: None)
  Receive Date: 20120410
  Receipt Date: 20120410
  Transmission Date: 20120825
  Serious: No
  Sender: FDA-Public Use
  Company Number: None

PATIENT
  Age: 31 Year
  Sex: Male
  Weight: 90.718 kg

DRUGS (1)
  1. LAMOTRGINE [Suspect]
     Dosage: 12.5MG
     Route: 048

REACTIONS (1)
  - RASH [None]
